FAERS Safety Report 13607244 (Version 1)
Quarter: 2017Q2

REPORT INFORMATION
  Report Type: Spontaneous
  Country: US (occurrence: US)
  Receive Date: 20170602
  Receipt Date: 20170602
  Transmission Date: 20170830
  Serious: Yes (Hospitalization)
  Sender: FDA-Public Use
  Company Number: US-APOTEX-2017AP012506

PATIENT
  Age: 58 Year
  Sex: Female

DRUGS (4)
  1. BUSPIPRONE HYDROCHLORIDE TABLETS USP [Suspect]
     Active Substance: BUSPIRONE HYDROCHLORIDE
     Indication: PRODUCT USED FOR UNKNOWN INDICATION
     Route: 065
  2. DIVALPROEX SODIUM DELAYED-RELEASE TABLETS USP [Suspect]
     Active Substance: DIVALPROEX SODIUM
     Indication: PRODUCT USED FOR UNKNOWN INDICATION
     Route: 065
  3. CLOZAPINE. [Suspect]
     Active Substance: CLOZAPINE
     Indication: PRODUCT USED FOR UNKNOWN INDICATION
     Dosage: 325 MG, QD
     Route: 065
  4. CLOZAPINE. [Suspect]
     Active Substance: CLOZAPINE
     Dosage: UNK, RETITRATED DOSE
     Route: 065

REACTIONS (4)
  - Toxicity to various agents [Unknown]
  - Somnolence [Unknown]
  - Drug interaction [Unknown]
  - Drug level above therapeutic [Unknown]
